FAERS Safety Report 11515765 (Version 2)
Quarter: 2016Q2

REPORT INFORMATION
  Report Type: Spontaneous
  Country: US (occurrence: US)
  Receive Date: 20150916
  Receipt Date: 20160502
  Transmission Date: 20160815
  Serious: No
  Sender: FDA-Public Use
  Company Number: US-MDT-ADR-2015-01794

PATIENT
  Age: 54 Year
  Sex: Male

DRUGS (1)
  1. BACLOFEN. [Suspect]
     Active Substance: BACLOFEN
     Dosage: 866.7 MCG/DAY
     Route: 037

REACTIONS (3)
  - Pain [Recovering/Resolving]
  - Therapeutic response decreased [Recovering/Resolving]
  - Muscle spasticity [Recovering/Resolving]
